FAERS Safety Report 9207208 (Version 2)
Quarter: 2013Q1

REPORT INFORMATION
  Report Type: Spontaneous
  Country: US (occurrence: None)
  Receive Date: 20120802
  Receipt Date: 20120802
  Transmission Date: 20140127
  Serious: Yes (Hospitalization)
  Sender: FDA-Public Use
  Company Number: AMAG201200033

PATIENT
  Age: 73 Year
  Sex: Female
  Weight: 92.1 kg

DRUGS (1)
  1. FERAHEME (FERUMOXYTOL) INJECTION, 510MG [Suspect]
     Indication: IRON DEFICIENCY ANAEMIA
     Dosage: IV PUSH
     Route: 042
     Dates: start: 20120221, end: 20120221

REACTIONS (8)
  - Chest pain [None]
  - Musculoskeletal stiffness [None]
  - Leukocytosis [None]
  - Hyponatraemia [None]
  - Renal failure [None]
  - Back pain [None]
  - Nausea [None]
  - Vomiting [None]
